FAERS Safety Report 4509663-3 (Version None)
Quarter: 2004Q4

REPORT INFORMATION
  Report Type: 
  Country: None (occurrence: None)
  Receive Date: 20041119
  Receipt Date: 20041101
  Transmission Date: 20050328
  Serious: Yes (Hospitalization)
  Sender: FDA-Public Use
  Company Number: USA041182956

PATIENT
  Age: 67 Year
  Sex: Female

DRUGS (1)
  1. FORTEO [Suspect]
     Indication: OSTEOPOROSIS
     Dates: start: 20030101

REACTIONS (6)
  - CONCUSSION [None]
  - FALL [None]
  - RESPIRATORY ARREST [None]
  - SEXUAL ASSAULT VICTIM [None]
  - THYROID DISORDER [None]
  - VICTIM OF CRIME [None]
